FAERS Safety Report 21689161 (Version 3)
Quarter: 2022Q4

REPORT INFORMATION
  Report Type: Report from Study
  Country: US (occurrence: US)
  Receive Date: 20221206
  Receipt Date: 20221209
  Transmission Date: 20230113
  Serious: Yes (Other)
  Sender: FDA-Public Use
  Company Number: US-002147023-NVSC2022US281463

PATIENT
  Sex: Female

DRUGS (1)
  1. TREPROSTINIL [Suspect]
     Active Substance: TREPROSTINIL
     Indication: Pulmonary arterial hypertension
     Dosage: UNK UNK, CONT (28 NG/KG/MIN)
     Route: 042
     Dates: start: 202104

REACTIONS (3)
  - Influenza [Unknown]
  - COVID-19 [Unknown]
  - Condition aggravated [Unknown]
